FAERS Safety Report 21816688 (Version 1)
Quarter: 2023Q1

REPORT INFORMATION
  Report Type: Spontaneous
  Country: US (occurrence: None)
  Receive Date: 20230103
  Receipt Date: 20230103
  Transmission Date: 20230417
  Serious: Yes (Death)
  Sender: FDA-Public Use
  Company Number: None

PATIENT
  Age: 67 Year
  Sex: Male

DRUGS (2)
  1. ABECMA [Suspect]
     Active Substance: IDECABTAGENE VICLEUCEL
     Indication: Plasma cell myeloma
     Dates: start: 20220815, end: 20220815
  2. PAXLOVID [Suspect]
     Active Substance: NIRMATRELVIR\RITONAVIR

REACTIONS (8)
  - Mental disorder [None]
  - COVID-19 [None]
  - Haemophagocytic lymphohistiocytosis [None]
  - Hepatic failure [None]
  - Serum ferritin increased [None]
  - Thrombocytopenia [None]
  - Pneumonia aspiration [None]
  - Pulmonary haemorrhage [None]

NARRATIVE: CASE EVENT DATE: 20221227
